FAERS Safety Report 20321745 (Version 1)
Quarter: 2022Q1

REPORT INFORMATION
  Report Type: Spontaneous
  Country: US (occurrence: None)
  Receive Date: 20220110
  Receipt Date: 20220110
  Transmission Date: 20220423
  Serious: Yes (Life-Threatening, Hospitalization)
  Sender: FDA-Public Use
  Company Number: None

PATIENT
  Sex: Female

DRUGS (15)
  1. BOTOX [Suspect]
     Active Substance: ONABOTULINUMTOXINA
     Indication: Migraine
     Dosage: OTHER FREQUENCY : EVERY 3 MONTHS;?
     Route: 030
  2. AIMOVIG [Suspect]
     Active Substance: ERENUMAB-AOOE
     Dosage: OTHER FREQUENCY : ONCE MONTHLY;?
     Route: 058
  3. lovastatin 20mg [Concomitant]
  4. PANTOPRAZOLE SODIUM [Concomitant]
     Active Substance: PANTOPRAZOLE SODIUM
  5. thyroid 15mg tab [Concomitant]
  6. wellburtrin sr 150mg [Concomitant]
  7. COCONUT OIL [Concomitant]
     Active Substance: COCONUT OIL
  8. fish oil 1000mg [Concomitant]
  9. ASPIRIN [Concomitant]
     Active Substance: ASPIRIN
  10. metoprolol er 25mg [Concomitant]
  11. nitroglycerine 0.4mg [Concomitant]
  12. PLAVIX [Concomitant]
     Active Substance: CLOPIDOGREL BISULFATE
  13. FUROSEMIDE [Concomitant]
     Active Substance: FUROSEMIDE
  14. potassium CL 10meq [Concomitant]
  15. BOTOX [Concomitant]
     Active Substance: ONABOTULINUMTOXINA

REACTIONS (2)
  - Cerebrovascular accident [None]
  - Myocardial infarction [None]
